FAERS Safety Report 13030536 (Version 1)
Quarter: 2016Q4

REPORT INFORMATION
  Report Type: Spontaneous
  Country: IT (occurrence: IT)
  Receive Date: 20161215
  Receipt Date: 20161215
  Transmission Date: 20170207
  Serious: Yes (Death)
  Sender: FDA-Public Use
  Company Number: IT-GE HEALTHCARE MEDICAL DIAGNOSTICS-OMPQ-PR-1612S-2289

PATIENT
  Age: 82 Year
  Sex: Female

DRUGS (2)
  1. OMNIPAQUE [Suspect]
     Active Substance: IOHEXOL
     Indication: DIAGNOSTIC PROCEDURE
  2. OMNIPAQUE [Suspect]
     Active Substance: IOHEXOL
     Indication: BREAST CANCER METASTATIC
     Dosage: DOSE NOT REPORTED
     Route: 042
     Dates: start: 20161201, end: 20161201

REACTIONS (3)
  - Dyspnoea [Fatal]
  - Hypertension [Fatal]
  - Haemoptysis [Fatal]

NARRATIVE: CASE EVENT DATE: 20161201
